FAERS Safety Report 7991643-7 (Version None)
Quarter: 2011Q4

REPORT INFORMATION
  Report Type: 
  Country: None (occurrence: None)
  Receive Date: 20111219
  Receipt Date: 20111205
  Transmission Date: 20120403
  Serious: Yes (Death)
  Sender: FDA-Public Use
  Company Number: PHHY2011US108194

PATIENT
  Age: 59 Year
  Sex: Female

DRUGS (3)
  1. CLONAZEPAM [Suspect]
  2. PHENYLBUTAZONE [Suspect]
     Dosage: UNK
  3. IMIPRAMINE [Suspect]

REACTIONS (1)
  - COMPLETED SUICIDE [None]
